FAERS Safety Report 9536321 (Version 1)
Quarter: 2013Q2

REPORT INFORMATION
  Report Type: Spontaneous
  Country: US (occurrence: None)
  Receive Date: 20130517
  Receipt Date: 20130517
  Transmission Date: 20140414
  Serious: Yes (Other)
  Sender: FDA-Public Use
  Company Number: 1000044531

PATIENT
  Age: 70 Year
  Sex: Female

DRUGS (4)
  1. VIIBRYD [Suspect]
     Indication: MAJOR DEPRESSION
     Route: 048
     Dates: start: 20130416
  2. LAMICTAL (LAMOTRIGINE) (LAMOTRIGINE) [Concomitant]
  3. DIOVAN (VALSARTAN) (VALSARTAN) (VALSARTAN) [Concomitant]
  4. SIMVASTATIN (SIMVASTATIN) (SIMVASTATIN) [Concomitant]

REACTIONS (2)
  - Nausea [None]
  - Diarrhoea [None]
